FAERS Safety Report 6579174-2 (Version None)
Quarter: 2010Q1

REPORT INFORMATION
  Report Type: 
  Country: None (occurrence: None)
  Receive Date: 20100212
  Receipt Date: 20100202
  Transmission Date: 20100710
  Serious: Yes (Hospitalization, Other)
  Sender: FDA-Public Use
  Company Number: PHEH2010US01960

PATIENT
  Weight: 68 kg

DRUGS (7)
  1. EXJADE [Suspect]
     Indication: SERUM FERRITIN INCREASED
     Dosage: 1000 MG, QD
     Route: 048
     Dates: start: 20060111
  2. EXJADE [Suspect]
     Indication: IRON OVERLOAD
  3. PLAVIX [Concomitant]
     Indication: CEREBROVASCULAR ACCIDENT
     Dosage: 75 MG, QD
     Route: 048
  4. METHADONE HCL [Concomitant]
     Indication: PAIN
     Dosage: 10 MG, TID
     Route: 048
  5. HYDREA [Concomitant]
     Indication: SICKLE CELL ANAEMIA
     Dosage: 500 MG, QD
  6. FOSAMAX [Concomitant]
     Indication: OSTEOPENIA
     Dosage: 70 MEQ/KG, QW
  7. LISINOPRIL [Concomitant]
     Indication: HYPERTENSION
     Dosage: 5 MG, QD

REACTIONS (2)
  - OSTEONECROSIS [None]
  - WOUND INFECTION [None]
